FAERS Safety Report 25395055 (Version 1)
Quarter: 2025Q2

REPORT INFORMATION
  Report Type: Spontaneous
  Country: CN (occurrence: CN)
  Receive Date: 20250604
  Receipt Date: 20250604
  Transmission Date: 20250716
  Serious: Yes (Other)
  Sender: RANBAXY
  Company Number: CN-SUN PHARMACEUTICAL INDUSTRIES INC-2025R1-509849

PATIENT
  Age: 53 Year
  Sex: Female

DRUGS (3)
  1. DOXEPIN [Suspect]
     Active Substance: DOXEPIN
     Indication: Pain management
     Dosage: 25 MILLIGRAM, DAILY
     Route: 048
  2. SUFENTANIL [Suspect]
     Active Substance: SUFENTANIL
     Indication: Pain management
     Route: 042
  3. CELECOXIB [Concomitant]
     Active Substance: CELECOXIB
     Indication: Pain management
     Dosage: 200 MILLIGRAM, DAILY
     Route: 048

REACTIONS (1)
  - Serotonin syndrome [Recovering/Resolving]
